FAERS Safety Report 6357034-X (Version None)
Quarter: 2009Q3

REPORT INFORMATION
  Report Type: 
  Country: None (occurrence: None)
  Receive Date: 20090915
  Receipt Date: 20081211
  Transmission Date: 20100115
  Serious: No
  Sender: FDA-Public Use
  Company Number: US-ABBOTT-08P-163-0492436-00

PATIENT

DRUGS (1)
  1. DEPAKOTE [Suspect]
     Indication: ABNORMAL BEHAVIOUR
     Dosage: UNKNOWN

REACTIONS (1)
  - MEDICATION RESIDUE [None]
